FAERS Safety Report 5403389-X (Version None)
Quarter: 2007Q3

REPORT INFORMATION
  Report Type: 
  Country: None (occurrence: None)
  Receive Date: 20070730
  Receipt Date: 20070716
  Transmission Date: 20080115
  Serious: Yes (Other)
  Sender: FDA-Public Use
  Company Number: 17029

PATIENT
  Age: 74 Year
  Sex: Male

DRUGS (6)
  1. METHOTREXATE [Suspect]
     Dosage: 2.5 MG
     Dates: end: 20061229
  2. CODEINE PHOSPHATE AND ACETAMINOPHEN [Concomitant]
  3. DIGOXIN [Concomitant]
  4. EZETIMIBE [Concomitant]
  5. PRAVASTATIN [Concomitant]
  6. WARFARIN SODIUM [Concomitant]

REACTIONS (1)
  - TRANSIENT ISCHAEMIC ATTACK [None]
